FAERS Safety Report 8988329 (Version 1)
Quarter: 2012Q4

REPORT INFORMATION
  Report Type: Spontaneous
  Country: US (occurrence: None)
  Receive Date: 20121220
  Receipt Date: 20121220
  Transmission Date: 20130627
  Serious: Yes (Hospitalization)
  Sender: FDA-Public Use
  Company Number: None

PATIENT
  Age: 56 Year
  Sex: Male

DRUGS (2)
  1. PHENYTOIN [Suspect]
     Indication: SEIZURE
     Dosage: 100 mg/3 tab twice daily po
     Route: 048
  2. PHENYTOIN [Suspect]

REACTIONS (2)
  - Convulsion [None]
  - Drug level changed [None]
